FAERS Safety Report 8324372-0 (Version None)
Quarter: 2012Q2

REPORT INFORMATION
  Report Type: 
  Country: None (occurrence: None)
  Receive Date: 20120430
  Receipt Date: 20120430
  Transmission Date: 20120825
  Serious: Yes (Other)
  Sender: FDA-Public Use
  Company Number: None

PATIENT
  Age: 59 Year
  Sex: Male
  Weight: 86.4 kg

DRUGS (2)
  1. ALLOPURINOL [Suspect]
     Dosage: 100 MG DAILY PO
     Route: 048
     Dates: start: 20111110, end: 20120404
  2. CYCLOBENZAPRINE [Concomitant]

REACTIONS (1)
  - CONTUSION [None]
